FAERS Safety Report 7300013-6 (Version None)
Quarter: 2011Q1

REPORT INFORMATION
  Report Type: 
  Country: None (occurrence: None)
  Receive Date: 20110217
  Receipt Date: 20110214
  Transmission Date: 20110831
  Serious: Yes (Hospitalization)
  Sender: FDA-Public Use
  Company Number: BR-PFIZER INC-2010141170

PATIENT
  Age: 40 Year
  Sex: Female
  Weight: 65 kg

DRUGS (4)
  1. CYMBALTA [Concomitant]
     Dosage: 60MG
     Dates: start: 20101101
  2. AROPAX [Concomitant]
     Dosage: 20MG
     Dates: start: 20070101
  3. LYRICA [Suspect]
     Indication: PANIC DISORDER
     Dosage: 75 MG, 1X/DAY
     Route: 048
     Dates: start: 20101101, end: 20101105
  4. RIVOTRIL [Concomitant]
     Dosage: 0.5MG OR 1.0MG, UNSPECIFIED FREQUENCY

REACTIONS (13)
  - DRUG INEFFECTIVE FOR UNAPPROVED INDICATION [None]
  - PANIC REACTION [None]
  - DIZZINESS [None]
  - WEIGHT DECREASED [None]
  - SOMNOLENCE [None]
  - NERVOUSNESS [None]
  - FEELING ABNORMAL [None]
  - HYPERHIDROSIS [None]
  - ASTHENIA [None]
  - DECREASED APPETITE [None]
  - SEDATION [None]
  - DYSGEUSIA [None]
  - POOR QUALITY SLEEP [None]
